FAERS Safety Report 7434430-0 (Version None)
Quarter: 2011Q2

REPORT INFORMATION
  Report Type: 
  Country: None (occurrence: None)
  Receive Date: 20110425
  Receipt Date: 20110414
  Transmission Date: 20111010
  Serious: Yes (Hospitalization)
  Sender: FDA-Public Use
  Company Number: JP-JNJFOC-20110300003

PATIENT
  Sex: Male

DRUGS (5)
  1. RESPLEN [Concomitant]
     Indication: UPPER RESPIRATORY TRACT INFLAMMATION
     Route: 048
  2. CALONAL [Concomitant]
     Indication: UPPER RESPIRATORY TRACT INFLAMMATION
     Route: 048
  3. PL GRAN [Concomitant]
     Indication: UPPER RESPIRATORY TRACT INFLAMMATION
     Route: 048
  4. CRAVIT [Suspect]
     Indication: INFECTION PROPHYLAXIS
     Route: 048
  5. INAVIR (LANINAMIVIR OCTANOATE) [Suspect]
     Indication: INFLUENZA
     Route: 055

REACTIONS (2)
  - HEPATIC FUNCTION ABNORMAL [None]
  - PULMONARY TOXICITY [None]
